FAERS Safety Report 13265162 (Version 1)
Quarter: 2017Q1

REPORT INFORMATION
  Report Type: Spontaneous
  Country: US (occurrence: US)
  Receive Date: 20170223
  Receipt Date: 20170223
  Transmission Date: 20170428
  Serious: Yes (Other)
  Sender: FDA-Public Use
  Company Number: US-PURDUE-USA-2017-0136526

PATIENT
  Age: 55 Year
  Sex: Female

DRUGS (1)
  1. HYSINGLA ER [Suspect]
     Active Substance: HYDROCODONE BITARTRATE
     Indication: ANALGESIC THERAPY
     Dosage: 20 MG, Q24H
     Route: 048
     Dates: start: 20170206, end: 20170208

REACTIONS (11)
  - Restlessness [Recovered/Resolved]
  - Autophobia [Recovered/Resolved]
  - Feeling guilty [Recovered/Resolved]
  - Pain [Recovered/Resolved]
  - Anger [Unknown]
  - Drug abuse [Unknown]
  - Abdominal discomfort [Recovered/Resolved]
  - Paranoia [Recovered/Resolved]
  - Hyperhidrosis [Recovered/Resolved]
  - Drug withdrawal syndrome [Unknown]
  - Anxiety [Unknown]

NARRATIVE: CASE EVENT DATE: 20170206
